FAERS Safety Report 16209253 (Version 3)
Quarter: 2019Q2

REPORT INFORMATION
  Report Type: Spontaneous
  Country: TR (occurrence: TR)
  Receive Date: 20190417
  Receipt Date: 20190506
  Transmission Date: 20190711
  Serious: Yes (Death, Hospitalization, Other)
  Sender: FDA-Public Use
  Company Number: TR-GILEAD-2019-0402744

PATIENT
  Age: 39 Year
  Sex: Male

DRUGS (9)
  1. TRIUMEQ [Concomitant]
     Active Substance: ABACAVIR SULFATE\DOLUTEGRAVIR SODIUM\LAMIVUDINE
     Dosage: UNK
     Dates: start: 201802
  2. KALETRA [Concomitant]
     Active Substance: LOPINAVIR\RITONAVIR
  3. TMP-SMX [Concomitant]
     Active Substance: SULFAMETHOXAZOLE\TRIMETHOPRIM
     Dosage: UNK
     Dates: start: 201711
  4. FLUCONAZOLE. [Concomitant]
     Active Substance: FLUCONAZOLE
     Dosage: UNK
     Dates: start: 201711
  5. CIPROFLOXACIN;METRONIDAZOLE [Concomitant]
     Dosage: UNK
     Dates: start: 201711
  6. DOLUTEGRAVIR [Concomitant]
     Active Substance: DOLUTEGRAVIR
  7. BACTRIM [Concomitant]
     Active Substance: SULFAMETHOXAZOLE\TRIMETHOPRIM
  8. GENVOYA [Suspect]
     Active Substance: COBICISTAT\ELVITEGRAVIR\EMTRICITABINE\TENOFOVIR ALAFENAMIDE FUMARATE
     Indication: HIV INFECTION
     Dosage: UNK
     Route: 065
     Dates: start: 201711, end: 201802
  9. BENZATHINE PENICILLIN G [Concomitant]
     Active Substance: PENICILLIN G BENZATHINE

REACTIONS (4)
  - High-grade B-cell lymphoma [Fatal]
  - Drug resistance [Unknown]
  - Product use issue [Not Recovered/Not Resolved]
  - Viral load increased [Fatal]

NARRATIVE: CASE EVENT DATE: 2018
